FAERS Safety Report 5637972-3 (Version None)
Quarter: 2008Q1

REPORT INFORMATION
  Report Type: 
  Country: None (occurrence: None)
  Receive Date: 20080226
  Receipt Date: 20080125
  Transmission Date: 20080703
  Serious: No
  Sender: FDA-Public Use
  Company Number: US-BAYER-200812674NA

PATIENT
  Age: 52 Year
  Sex: Female

DRUGS (2)
  1. ANGELIQ [Suspect]
     Route: 048
  2. ANGELIQ [Suspect]
     Route: 048
     Dates: start: 20080118

REACTIONS (2)
  - ALOPECIA [None]
  - WEIGHT INCREASED [None]
